FAERS Safety Report 4414303-8 (Version None)
Quarter: 2004Q2

REPORT INFORMATION
  Report Type: 
  Country: None (occurrence: None)
  Receive Date: 20040630
  Receipt Date: 20040406
  Transmission Date: 20050107
  Serious: No
  Sender: FDA-Public Use
  Company Number: 04P-163-0252701-00

PATIENT
  Age: 66 Year
  Sex: Female

DRUGS (10)
  1. HUMIRA [Suspect]
     Indication: RHEUMATOID ARTHRITIS
     Dosage: 40 MG, 1 IN 2 WK, SUBCUTANEOUS
     Route: 058
     Dates: start: 20040209
  2. METHOTREXATE SODIUM [Concomitant]
  3. FOLIC ACID [Concomitant]
  4. MELOXICAM [Concomitant]
  5. CONJUGATED ESTROGEN [Concomitant]
  6. SULFASALAZINE [Concomitant]
  7. ASPIRIN [Concomitant]
  8. HYDROCODONE [Concomitant]
  9. MELOXICAM [Concomitant]
  10. DIPHENHYDRAMINE HCL [Concomitant]

REACTIONS (4)
  - ARTHRALGIA [None]
  - INJECTION SITE BURNING [None]
  - INJECTION SITE HAEMORRHAGE [None]
  - OEDEMA PERIPHERAL [None]
